FAERS Safety Report 5021910-0 (Version None)
Quarter: 2006Q2

REPORT INFORMATION
  Report Type: 
  Country: None (occurrence: None)
  Receive Date: 20060609
  Receipt Date: 20060529
  Transmission Date: 20061013
  Serious: Yes (Hospitalization)
  Sender: FDA-Public Use
  Company Number: PHRM2006FR01674

PATIENT
  Sex: Female

DRUGS (1)
  1. SANDOSTATIN [Suspect]
     Indication: ACROMEGALY
     Dosage: 20 MG, QMO
     Route: 030

REACTIONS (5)
  - ALOPECIA [None]
  - CYST [None]
  - CYST REMOVAL [None]
  - GLUCOSE TOLERANCE IMPAIRED [None]
  - IMPAIRED HEALING [None]
